FAERS Safety Report 8244475-9 (Version None)
Quarter: 2012Q1

REPORT INFORMATION
  Report Type: 
  Country: None (occurrence: None)
  Receive Date: 20120329
  Receipt Date: 20120320
  Transmission Date: 20120608
  Serious: Yes (Hospitalization)
  Sender: FDA-Public Use
  Company Number: US-JNJFOC-20120311569

PATIENT
  Age: 58 Year
  Sex: Male

DRUGS (4)
  1. INVEGA SUSTENNA [Suspect]
     Indication: SCHIZOAFFECTIVE DISORDER
     Route: 030
     Dates: start: 20120301
  2. INVEGA SUSTENNA [Suspect]
     Route: 030
     Dates: start: 20120101, end: 20120301
  3. LITHIUM CARBONATE [Concomitant]
     Indication: SCHIZOAFFECTIVE DISORDER
     Route: 048
     Dates: end: 20120318
  4. DEPAKOTE [Concomitant]
     Indication: SCHIZOAFFECTIVE DISORDER
     Route: 065
     Dates: start: 20120318

REACTIONS (2)
  - PSYCHOTIC DISORDER [None]
  - DRUG INEFFECTIVE [None]
